FAERS Safety Report 16641729 (Version 2)
Quarter: 2019Q3

REPORT INFORMATION
  Report Type: Spontaneous
  Country: US (occurrence: US)
  Receive Date: 20190729
  Receipt Date: 20190816
  Transmission Date: 20191004
  Serious: Yes (Other)
  Sender: FDA-Public Use
  Company Number: US-009507513-1907USA014223

PATIENT
  Age: 69 Year
  Sex: Female

DRUGS (2)
  1. DULERA [Suspect]
     Active Substance: FORMOTEROL FUMARATE DIHYDRATE\MOMETASONE FUROATE
     Indication: ASTHMA
     Dosage: TWO PUFFS, TWICE A DAY
     Dates: start: 2013
  2. PREDNISONE. [Concomitant]
     Active Substance: PREDNISONE
     Dosage: UNK

REACTIONS (7)
  - Hypotension [Unknown]
  - Product use in unapproved indication [Unknown]
  - Intraocular pressure increased [Unknown]
  - Aortic aneurysm [Unknown]
  - Cataract [Recovered/Resolved]
  - Chest pain [Unknown]
  - Ophthalmic herpes zoster [Unknown]

NARRATIVE: CASE EVENT DATE: 2013
